FAERS Safety Report 13431106 (Version 1)
Quarter: 2017Q2

REPORT INFORMATION
  Report Type: Spontaneous
  Country: US (occurrence: US)
  Receive Date: 20170411
  Receipt Date: 20170411
  Transmission Date: 20170830
  Serious: Yes (Hospitalization)
  Sender: FDA-Public Use
  Company Number: None

PATIENT
  Age: 75 Year
  Sex: Male
  Weight: 80 kg

DRUGS (2)
  1. SULFACETAMIDE. [Suspect]
     Active Substance: SULFACETAMIDE
  2. PHENYLEPHRINE [Suspect]
     Active Substance: PHENYLEPHRINE\PHENYLEPHRINE HYDROCHLORIDE
     Dates: start: 20110412, end: 20110412

REACTIONS (2)
  - Constipation [None]
  - Urinary retention [None]

NARRATIVE: CASE EVENT DATE: 20110412
